FAERS Safety Report 4375793-2 (Version None)
Quarter: 2004Q2

REPORT INFORMATION
  Report Type: 
  Country: None (occurrence: None)
  Receive Date: 20040611
  Receipt Date: 20040426
  Transmission Date: 20050107
  Serious: Yes (Congenital Anomaly, Other)
  Sender: FDA-Public Use
  Company Number: PHRM2004FR01664

PATIENT
  Age: 33 Year
  Sex: Female
  Weight: 69 kg

DRUGS (1)
  1. LAMISIL [Suspect]
     Indication: NAIL TINEA
     Dosage: 250 MG, QD
     Route: 048
     Dates: start: 20030906, end: 20031201

REACTIONS (4)
  - ABORTION INDUCED [None]
  - ASCITES [None]
  - DRUG EXPOSURE DURING PREGNANCY [None]
  - TURNER'S SYNDROME [None]
